FAERS Safety Report 18779161 (Version 3)
Quarter: 2021Q3

REPORT INFORMATION
  Report Type: Spontaneous
  Country: US (occurrence: US)
  Receive Date: 20210125
  Receipt Date: 20210908
  Transmission Date: 20211014
  Serious: No
  Sender: FDA-Public Use
  Company Number: US-ELI_LILLY_AND_COMPANY-US202101007910

PATIENT

DRUGS (2)
  1. TRULICITY [Suspect]
     Active Substance: DULAGLUTIDE
     Dosage: 0.75 MG, UNKNOWN
     Route: 065
  2. TRULICITY [Suspect]
     Active Substance: DULAGLUTIDE
     Indication: PRODUCT USED FOR UNKNOWN INDICATION
     Dosage: 1.75 U, UNKNOWN
     Route: 065

REACTIONS (6)
  - Nerve injury [Unknown]
  - Increased appetite [Unknown]
  - Abdominal pain upper [Not Recovered/Not Resolved]
  - Neuropathy peripheral [Unknown]
  - Weight decreased [Unknown]
  - Neuralgia [Unknown]
